FAERS Safety Report 9267960 (Version 2)
Quarter: 2013Q2

REPORT INFORMATION
  Report Type: Spontaneous
  Country: JP (occurrence: JP)
  Receive Date: 20130502
  Receipt Date: 20130524
  Transmission Date: 20140414
  Serious: Yes (Hospitalization)
  Sender: FDA-Public Use
  Company Number: JP-ELI_LILLY_AND_COMPANY-JP201304007399

PATIENT
  Age: 66 Year
  Sex: Male

DRUGS (2)
  1. GEMZAR [Suspect]
     Indication: PANCREATIC CARCINOMA STAGE IV
     Dosage: 1000 MG/M2, UNK
     Route: 042
  2. TS 1 [Concomitant]
     Indication: PANCREATIC CARCINOMA STAGE IV
     Dosage: 60 MG/M2, UNK

REACTIONS (3)
  - Duodenal perforation [Recovered/Resolved]
  - Small intestinal haemorrhage [Recovered/Resolved]
  - Neutrophil count decreased [Unknown]
